FAERS Safety Report 23017456 (Version 1)
Quarter: 2023Q4

REPORT INFORMATION
  Report Type: Report from Study
  Country: US (occurrence: US)
  Receive Date: 20231003
  Receipt Date: 20231003
  Transmission Date: 20240110
  Serious: Yes (Other)
  Sender: FDA-Public Use
  Company Number: US-ABBVIE-5429198

PATIENT
  Sex: Female

DRUGS (1)
  1. IMBRUVICA [Suspect]
     Active Substance: IBRUTINIB
     Indication: Chronic lymphocytic leukaemia
     Route: 048
     Dates: start: 202101

REACTIONS (6)
  - Knee arthroplasty [Unknown]
  - Nausea [Unknown]
  - Arthritis [Unknown]
  - Hair texture abnormal [Unknown]
  - Skin fissures [Unknown]
  - Dry skin [Unknown]
